FAERS Safety Report 7017521-8 (Version None)
Quarter: 2010Q3

REPORT INFORMATION
  Report Type: 
  Country: None (occurrence: None)
  Receive Date: 20100928
  Receipt Date: 20100412
  Transmission Date: 20110219
  Serious: Yes (Other)
  Sender: FDA-Public Use
  Company Number: US-ASTRAZENECA-2009SE12244

PATIENT
  Sex: Male

DRUGS (9)
  1. SEROQUEL [Suspect]
     Route: 048
     Dates: end: 20050414
  2. FLOMAX [Concomitant]
  3. REMERON [Concomitant]
     Dates: start: 20050101
  4. EFFEXOR [Concomitant]
  5. IMODIUM [Concomitant]
     Dates: start: 20050101
  6. VISTARIL [Concomitant]
     Dates: start: 20050101
  7. ALTACE [Concomitant]
     Dates: start: 20050101, end: 20050414
  8. ZYPREXA [Concomitant]
     Dates: start: 20030421
  9. SERZONE [Concomitant]
     Dates: start: 20050101

REACTIONS (3)
  - DIABETES MELLITUS [None]
  - NEUROPATHY PERIPHERAL [None]
  - TYPE 2 DIABETES MELLITUS [None]
